FAERS Safety Report 15844874 (Version 3)
Quarter: 2020Q2

REPORT INFORMATION
  Report Type: Spontaneous
  Country: JP (occurrence: JP)
  Receive Date: 20190118
  Receipt Date: 20200513
  Transmission Date: 20200713
  Serious: Yes (Other)
  Sender: FDA-Public Use
  Company Number: JP-BRISTOL-MYERS SQUIBB COMPANY-BMS-2019-003841

PATIENT
  Age: 4 Decade
  Sex: Female

DRUGS (1)
  1. ELIQUIS [Suspect]
     Active Substance: APIXABAN
     Indication: EMBOLISM VENOUS
     Dosage: 10 MG, QD
     Route: 048

REACTIONS (3)
  - Abortion [Unknown]
  - Intentional product use issue [Unknown]
  - Maternal exposure during pregnancy [Recovered/Resolved]
